FAERS Safety Report 5123878-5 (Version None)
Quarter: 2006Q4

REPORT INFORMATION
  Report Type: 
  Country: None (occurrence: None)
  Receive Date: 20061010
  Receipt Date: 20061005
  Transmission Date: 20070319
  Serious: Yes (Hospitalization)
  Sender: FDA-Public Use
  Company Number: CH-GLAXOSMITHKLINE-B0441466A

PATIENT
  Age: 83 Year
  Sex: Male
  Weight: 63 kg

DRUGS (9)
  1. PAROXAT [Suspect]
     Indication: ANXIETY
     Dosage: 5MG PER DAY
     Route: 048
     Dates: end: 20060724
  2. MINIRIN [Suspect]
     Indication: STRESS URINARY INCONTINENCE
     Dosage: 10MCG PER DAY
     Route: 045
     Dates: start: 20060401, end: 20060705
  3. SINEMET [Concomitant]
     Indication: PARKINSON'S DISEASE
     Route: 048
  4. DETRUSITOL [Concomitant]
     Indication: STRESS URINARY INCONTINENCE
     Route: 048
     Dates: end: 20060901
  5. FOLVITE [Concomitant]
     Dosage: 5MG PER DAY
     Route: 048
     Dates: start: 20060301, end: 20060724
  6. MOTILIUM [Concomitant]
     Indication: NAUSEA
     Dosage: 10MG THREE TIMES PER DAY
     Route: 048
     Dates: start: 20060710, end: 20060724
  7. FOSAMAX [Concomitant]
     Indication: OSTEOPOROSIS
     Route: 048
     Dates: start: 20060301
  8. CALCIMAGON-D3 [Concomitant]
     Indication: OSTEOPOROSIS
     Dosage: 500MG TWICE PER DAY
     Route: 048
     Dates: start: 20060301
  9. TRUSOPT [Concomitant]
     Indication: GLAUCOMA
     Route: 047

REACTIONS (5)
  - BLOOD SODIUM INCREASED [None]
  - COGNITIVE DISORDER [None]
  - CONDITION AGGRAVATED [None]
  - DRUG INTERACTION [None]
  - OFF LABEL USE [None]
